FAERS Safety Report 23972506 (Version 1)
Quarter: 2024Q2

REPORT INFORMATION
  Report Type: Spontaneous
  Country: US (occurrence: None)
  Receive Date: 20240613
  Receipt Date: 20240613
  Transmission Date: 20240716
  Serious: No
  Sender: FDA-Public Use
  Company Number: None

PATIENT
  Age: 72 Year
  Sex: Male
  Weight: 72.2 kg

DRUGS (2)
  1. APALUTAMIDE [Suspect]
     Active Substance: APALUTAMIDE
     Dates: end: 20240418
  2. LEUPROLIDE ACETATE [Suspect]
     Active Substance: ISOPROPYL ALCOHOL\LEUPROLIDE ACETATE
     Dates: end: 20240223

REACTIONS (8)
  - Rash [None]
  - Pruritus [None]
  - Skin disorder [None]
  - Erythema [None]
  - Rash macular [None]
  - Dry skin [None]
  - Scratch [None]
  - Therapy interrupted [None]

NARRATIVE: CASE EVENT DATE: 20240418
